FAERS Safety Report 9044237 (Version 1)
Quarter: 2013Q1

REPORT INFORMATION
  Report Type: Report from Study
  Country: US (occurrence: US)
  Receive Date: 20130131
  Receipt Date: 20130131
  Transmission Date: 20140127
  Serious: No
  Sender: FDA-Public Use
  Company Number: US-ABBOTT-12P-163-0984210-00

PATIENT
  Age: 71 Year
  Sex: Female

DRUGS (6)
  1. HUMIRA [Suspect]
     Indication: RHEUMATOID ARTHRITIS
     Dates: start: 200909
  2. METHOTREXATE [Concomitant]
     Indication: PRODUCT USED FOR UNKNOWN INDICATION
     Dosage: 6 TABLETS ON SUNDAY
  3. PLAQUENIL [Concomitant]
     Indication: PRODUCT USED FOR UNKNOWN INDICATION
  4. NORVASC [Concomitant]
     Indication: HYPERTENSION
  5. LEVOTHYROXINE [Concomitant]
     Indication: BLOOD THYROID STIMULATING HORMONE DECREASED
  6. METHAZINE [Concomitant]
     Indication: BLOOD THYROID STIMULATING HORMONE DECREASED
     Dosage: AS NEEDED

REACTIONS (2)
  - Dyspepsia [Not Recovered/Not Resolved]
  - Pain [Not Recovered/Not Resolved]
